FAERS Safety Report 9937252 (Version 2)
Quarter: 2014Q1

REPORT INFORMATION
  Report Type: Report from Study
  Country: FR (occurrence: FR)
  Receive Date: 20140302
  Receipt Date: 20140302
  Transmission Date: 20141002
  Serious: Yes (Hospitalization)
  Sender: FDA-Public Use
  Company Number: FR-ASTRAZENECA-2012SE47407

PATIENT
  Age: 21136 Day
  Sex: Male

DRUGS (23)
  1. TICAGRELOR [Suspect]
     Indication: ACUTE MYOCARDIAL INFARCTION
     Dosage: PLACEBO PRE-HOSP FOLLOWED BY LOADING DOSE 180 MG IN HOSPITAL
     Route: 048
     Dates: start: 20120626, end: 20120626
  2. TICAGRELOR [Suspect]
     Indication: ACUTE MYOCARDIAL INFARCTION
     Dosage: OPEN LABEL, 90 MG TWICE DAILY
     Route: 048
     Dates: start: 20120627, end: 20120723
  3. ASPIRIN [Concomitant]
     Route: 042
     Dates: start: 20120626, end: 20120626
  4. ASPIRIN [Concomitant]
     Route: 048
     Dates: start: 20120627, end: 20120707
  5. ASPIRIN [Concomitant]
     Route: 048
     Dates: start: 20120710
  6. LOVENOX [Concomitant]
     Route: 042
     Dates: start: 20120626, end: 20120626
  7. LOVENOX [Concomitant]
     Route: 042
     Dates: start: 20120627, end: 20120628
  8. LOVENOX [Concomitant]
     Route: 058
     Dates: start: 20120629, end: 20120629
  9. LOVENOX [Concomitant]
     Route: 042
     Dates: start: 20120629, end: 20120702
  10. REOPRO [Concomitant]
     Route: 042
     Dates: start: 20120629, end: 20120630
  11. INSPRA [Concomitant]
     Route: 048
     Dates: start: 20120628
  12. COVERSYL [Concomitant]
     Route: 048
     Dates: start: 20120628, end: 20120629
  13. PARACETAMOL [Concomitant]
     Route: 048
     Dates: start: 20120627, end: 20120628
  14. TAHOR [Concomitant]
     Route: 048
     Dates: start: 20120626
  15. INEXIUM [Concomitant]
     Route: 048
     Dates: start: 20120626
  16. SECTRAL [Concomitant]
     Route: 048
     Dates: start: 20120626
  17. ZOPICLONE [Concomitant]
     Route: 048
     Dates: start: 20120627
  18. PERINDOPRIL [Concomitant]
     Route: 048
     Dates: start: 20120630
  19. SMECTA [Concomitant]
     Route: 048
     Dates: start: 20120701, end: 20120701
  20. RISORDAN [Concomitant]
     Route: 042
     Dates: start: 20120626, end: 20120626
  21. KRENOSIN [Concomitant]
     Route: 042
     Dates: start: 20120626, end: 20120626
  22. ISOPTINE [Concomitant]
     Route: 042
     Dates: start: 20120626, end: 20120626
  23. NUBAIN [Concomitant]
     Route: 042
     Dates: start: 20120626, end: 20120626

REACTIONS (1)
  - Gastric ulcer [Recovered/Resolved]
